FAERS Safety Report 11791477 (Version 1)
Quarter: 2015Q4

REPORT INFORMATION
  Report Type: Other
  Country: TR (occurrence: TR)
  Receive Date: 20151201
  Receipt Date: 20151201
  Transmission Date: 20160305
  Serious: Yes (Hospitalization)
  Sender: FDA-Public Use
  Company Number: TR-DEP_13136_2015

PATIENT
  Age: 40 Year
  Sex: Male

DRUGS (8)
  1. APRANAX (NAPROXEN SODIUM) [Suspect]
     Active Substance: NAPROXEN SODIUM
     Indication: MIGRAINE
     Dosage: DF
  2. CATAFLAM [Suspect]
     Active Substance: DICLOFENAC POTASSIUM
     Indication: MIGRAINE
     Dosage: DF
  3. ARVELES (DEXKETOPROFEN TROMETAMOL) [Suspect]
     Active Substance: DEXKETOPROFEN TROMETAMOL
     Indication: MIGRAINE
     Dosage: DF
  4. NAPROXEN (NAPROXEN) [Suspect]
     Active Substance: NAPROXEN
     Indication: MIGRAINE
     Dosage: DF
  5. ATARAX [Suspect]
     Active Substance: HYDROXYZINE\HYDROXYZINE HYDROCHLORIDE
     Indication: MIGRAINE
     Dosage: DF
  6. NOVALGINE (METAMIZOLE SODIUM) [Suspect]
     Active Substance: METAMIZOLE SODIUM
     Indication: MIGRAINE
     Dosage: DF
  7. VERMIDON (NGX) (CAFFEINE, PARACETAMOL) [Suspect]
     Active Substance: ACETAMINOPHEN\CAFFEINE
     Indication: MIGRAINE
     Dosage: DF
  8. MAJEZIK (FLURBIPROFEN) [Suspect]
     Active Substance: FLURBIPROFEN
     Indication: MIGRAINE
     Dosage: DF

REACTIONS (2)
  - Migraine [Not Recovered/Not Resolved]
  - Gastric disorder [Not Recovered/Not Resolved]
